FAERS Safety Report 8536391-X (Version None)
Quarter: 2012Q3

REPORT INFORMATION
  Report Type: 
  Country: None (occurrence: None)
  Receive Date: 20120725
  Receipt Date: 20120719
  Transmission Date: 20120928
  Serious: Yes (Hospitalization)
  Sender: FDA-Public Use
  Company Number: US-TEVA-342881USA

PATIENT
  Sex: Male

DRUGS (14)
  1. IRINOTECAN HCL [Suspect]
     Indication: NEOPLASM
     Dosage: ON DAYS 1 AND DAY 15
     Route: 042
     Dates: start: 20120510, end: 20120510
  2. POTASSIUM CHLORIDE [Concomitant]
     Indication: ELECTROLYTE SUBSTITUTION THERAPY
     Dosage: 20 MILLIEQUIVALENTS; WITH ALDACTONE FOR ELECTROLYTE REPLACEMENT
     Dates: start: 20111028
  3. METOCLOPRAMIDE [Concomitant]
     Indication: VOMITING
  4. LEUCOVORIN CALCIUM [Suspect]
     Indication: NEOPLASM
     Dosage: ON DAYS 1 AND DAY 15
     Route: 042
     Dates: start: 20120510, end: 20120510
  5. DEXAMETHASONE [Concomitant]
     Indication: NAUSEA
     Dosage: AS REQUIRED
     Dates: start: 20120517
  6. VICODIN [Concomitant]
     Indication: PAIN
     Dosage: 1 TAB AS REQUIRED
     Dates: start: 20120510
  7. DEXAMETHASONE [Concomitant]
     Indication: VOMITING
  8. POTASSIUM CANRENOATE [Concomitant]
     Indication: HYPERTENSION
     Route: 042
  9. FUROSEMIDE [Concomitant]
     Indication: HYPERTENSION
  10. DALTEPARIN SODIUM [Concomitant]
     Indication: PULMONARY EMBOLISM
     Dosage: 15000 UNITS
     Dates: start: 20110901
  11. FLUOROURACIL [Suspect]
     Indication: NEOPLASM
     Dosage: OVER DAYS 1-3 AND 15-17 OF EACH 28 DAY CYCLE
     Route: 042
     Dates: start: 20120510, end: 20120510
  12. METOCLOPRAMIDE [Concomitant]
     Indication: NAUSEA
     Dosage: AS PREQUIRED
     Dates: start: 20120517
  13. ABT-888 (NOT ADMINISTERED) (VELIPARIB) [Suspect]
     Indication: NEOPLASM
  14. LOPERAMIDE [Concomitant]
     Indication: DIARRHOEA
     Dosage: AS REQUIRED
     Dates: start: 20120510

REACTIONS (1)
  - INTESTINAL OBSTRUCTION [None]
